FAERS Safety Report 6615261-8 (Version None)
Quarter: 2010Q1

REPORT INFORMATION
  Report Type: 
  Country: None (occurrence: None)
  Receive Date: 20100226
  Receipt Date: 20100219
  Transmission Date: 20100710
  Serious: Yes (Other)
  Sender: FDA-Public Use
  Company Number: CAP10000114

PATIENT
  Age: 79 Year
  Sex: Female

DRUGS (2)
  1. ACTONEL [Suspect]
     Indication: OSTEOPOROSIS
     Dosage: 35 MG ONE DOSE ONLY, ORAL
     Route: 048
     Dates: start: 20090201, end: 20090201
  2. METOPROLOL (METOPROLOL) [Concomitant]

REACTIONS (2)
  - EYE PAIN [None]
  - MACULAR DEGENERATION [None]
